FAERS Safety Report 10572824 (Version 1)
Quarter: 2014Q4

REPORT INFORMATION
  Report Type: Spontaneous
  Country: US (occurrence: None)
  Receive Date: 20141107
  Receipt Date: 20141107
  Transmission Date: 20150529
  Serious: Yes (Hospitalization)
  Sender: FDA-Public Use
  Company Number: None

PATIENT
  Age: 58 Year
  Sex: Male
  Weight: 81.65 kg

DRUGS (3)
  1. FISH OIL [Suspect]
     Active Substance: FISH OIL
     Indication: ATRIAL FIBRILLATION
     Route: 048
  2. FISH OIL [Suspect]
     Active Substance: FISH OIL
     Indication: HEART VALVE REPLACEMENT
     Route: 048
  3. COUMADIN [Suspect]
     Active Substance: WARFARIN SODIUM

REACTIONS (1)
  - International normalised ratio increased [None]

NARRATIVE: CASE EVENT DATE: 20141104
